FAERS Safety Report 8607331-X (Version None)
Quarter: 2012Q3

REPORT INFORMATION
  Report Type: 
  Country: None (occurrence: None)
  Receive Date: 20120821
  Receipt Date: 20120817
  Transmission Date: 20120928
  Serious: No
  Sender: FDA-Public Use
  Company Number: US-PFIZER INC-2012203171

PATIENT
  Age: 47 Year
  Sex: Female
  Weight: 54.422 kg

DRUGS (2)
  1. PRISTIQ [Suspect]
     Indication: DEPRESSION
     Dosage: 50 MG,DAILY
     Route: 048
     Dates: start: 20120815, end: 20120816
  2. PRISTIQ [Suspect]
     Indication: ANXIETY

REACTIONS (2)
  - EXPIRED DRUG ADMINISTERED [None]
  - NAUSEA [None]
